FAERS Safety Report 8353902-8 (Version None)
Quarter: 2012Q2

REPORT INFORMATION
  Report Type: 
  Country: None (occurrence: None)
  Receive Date: 20120511
  Receipt Date: 20120224
  Transmission Date: 20120825
  Serious: No
  Sender: FDA-Public Use
  Company Number: US-GLAXOSMITHKLINE-A0967714A

PATIENT
  Age: 51 Year
  Sex: Female
  Weight: 86.8 kg

DRUGS (8)
  1. ANASTROZOLE [Concomitant]
     Route: 048
  2. SYNTHROID [Concomitant]
     Route: 048
  3. LIDEX [Concomitant]
  4. TYKERB [Suspect]
     Indication: BREAST CANCER
     Dosage: 750MG PER DAY
     Route: 048
  5. NEURONTIN [Concomitant]
     Route: 048
  6. PRILOSEC [Concomitant]
     Route: 048
  7. CALCIUM [Concomitant]
     Route: 048
  8. HERCEPTIN [Concomitant]
     Route: 042

REACTIONS (2)
  - ECZEMA [None]
  - DIARRHOEA [None]
